FAERS Safety Report 5601600-3 (Version None)
Quarter: 2008Q1

REPORT INFORMATION
  Report Type: 
  Country: None (occurrence: None)
  Receive Date: 20080124
  Receipt Date: 20080114
  Transmission Date: 20080703
  Serious: Yes (Other)
  Sender: FDA-Public Use
  Company Number: AU-SANOFI-SYNTHELABO-A01200800321

PATIENT
  Sex: Female

DRUGS (3)
  1. ALCOHOL [Concomitant]
     Dosage: UNK
     Route: 048
  2. DIAZEPAM [Concomitant]
     Dosage: UNK
     Route: 048
  3. STILNOX [Suspect]
     Dosage: UNK
     Route: 048

REACTIONS (1)
  - ROAD TRAFFIC ACCIDENT [None]
